FAERS Safety Report 6998737-3 (Version None)
Quarter: 2010Q3

REPORT INFORMATION
  Report Type: 
  Country: None (occurrence: None)
  Receive Date: 20100920
  Receipt Date: 20100526
  Transmission Date: 20110219
  Serious: No
  Sender: FDA-Public Use
  Company Number: US-ASTRAZENECA-2010SE24373

PATIENT
  Sex: Male
  Weight: 89.8 kg

DRUGS (4)
  1. SEROQUEL XR [Suspect]
     Indication: SCHIZOPHRENIA
     Route: 048
     Dates: start: 20090101
  2. GLIMEPRIRIDE [Concomitant]
     Indication: DIABETES MELLITUS
  3. PROLIXIN [Concomitant]
  4. ARTANE [Concomitant]

REACTIONS (3)
  - DYSARTHRIA [None]
  - FATIGUE [None]
  - THINKING ABNORMAL [None]
